FAERS Safety Report 6589059-3 (Version None)
Quarter: 2010Q1

REPORT INFORMATION
  Report Type: 
  Country: None (occurrence: None)
  Receive Date: 20100218
  Receipt Date: 20100205
  Transmission Date: 20100710
  Serious: Yes (Death)
  Sender: FDA-Public Use
  Company Number: FR-AMGEN-US332917

PATIENT
  Sex: Male

DRUGS (6)
  1. ENBREL [Suspect]
     Indication: ANKYLOSING SPONDYLITIS
     Route: 058
     Dates: start: 20060101
  2. MODAFINIL [Suspect]
     Indication: NARCOLEPSY
     Dosage: 400 MG TOTAL DAILY
     Route: 048
     Dates: start: 20070101
  3. MODAFINIL [Suspect]
     Indication: CATAPLEXY
  4. XYREM [Suspect]
     Indication: NARCOLEPSY
     Dosage: 6 G TOTAL DAILY
     Route: 048
     Dates: start: 20080915
  5. XYREM [Suspect]
     Indication: CATAPLEXY
  6. APROVEL [Concomitant]
     Indication: HYPERTENSION
     Route: 048

REACTIONS (3)
  - ABDOMINAL PAIN UPPER [None]
  - DEATH [None]
  - HYPERHIDROSIS [None]
